FAERS Safety Report 13625143 (Version 1)
Quarter: 2017Q2

REPORT INFORMATION
  Report Type: Spontaneous
  Country: US (occurrence: US)
  Receive Date: 20170607
  Receipt Date: 20170607
  Transmission Date: 20170830
  Serious: Yes (Hospitalization)
  Sender: FDA-Public Use
  Company Number: None

PATIENT
  Age: 70 Year
  Sex: Male
  Weight: 77 kg

DRUGS (2)
  1. LIDOCAINE. [Suspect]
     Active Substance: LIDOCAINE
     Indication: CARDIOVASCULAR DISORDER
     Route: 042
     Dates: start: 20170606, end: 20170606
  2. LIDOCAINE. [Suspect]
     Active Substance: LIDOCAINE
     Indication: SURGERY
     Route: 042
     Dates: start: 20170606, end: 20170606

REACTIONS (1)
  - Seizure [None]

NARRATIVE: CASE EVENT DATE: 20170606
